FAERS Safety Report 7623953-7 (Version None)
Quarter: 2011Q3

REPORT INFORMATION
  Report Type: 
  Country: None (occurrence: None)
  Receive Date: 20110712
  Receipt Date: 20110627
  Transmission Date: 20111222
  Serious: Yes (Other)
  Sender: FDA-Public Use
  Company Number: 2011P1007438

PATIENT
  Age: 20 Month
  Sex: Female

DRUGS (1)
  1. GLYBURIDE [Suspect]
     Indication: ACCIDENTAL EXPOSURE
     Dosage: X1;PO
     Route: 048

REACTIONS (2)
  - HYPOGLYCAEMIA [None]
  - ACCIDENTAL DRUG INTAKE BY CHILD [None]
